FAERS Safety Report 13209126 (Version 2)
Quarter: 2017Q3

REPORT INFORMATION
  Report Type: Spontaneous
  Country: CA (occurrence: CA)
  Receive Date: 20170209
  Receipt Date: 20170920
  Transmission Date: 20171127
  Serious: Yes (Other)
  Sender: FDA-Public Use
  Company Number: CA-PFIZER INC-2017057696

PATIENT
  Age: 70 Year
  Sex: Female

DRUGS (30)
  1. ATORVASTATIN CALCIUM. [Suspect]
     Active Substance: ATORVASTATIN CALCIUM
     Dosage: UNK
     Route: 065
  2. FENOFIBRATE. [Concomitant]
     Active Substance: FENOFIBRATE
     Dosage: UNK
  3. HYDROMORPHONE [Concomitant]
     Active Substance: HYDROMORPHONE
     Dosage: UNK
  4. TOPIRAMATE. [Suspect]
     Active Substance: TOPIRAMATE
     Dosage: UNK
     Route: 065
  5. EZETIMIBE. [Suspect]
     Active Substance: EZETIMIBE
     Dosage: UNK
     Route: 065
  6. PRILOCAINE [Suspect]
     Active Substance: PRILOCAINE
     Dosage: UNK
     Route: 065
  7. RANITIDINE. [Suspect]
     Active Substance: RANITIDINE
     Dosage: UNK
     Route: 065
  8. ESOMEPRAZOLE [Concomitant]
     Active Substance: ESOMEPRAZOLE
     Dosage: UNK
  9. RAMIPRIL. [Suspect]
     Active Substance: RAMIPRIL
     Dosage: UNK
     Route: 065
  10. CELECOXIB. [Suspect]
     Active Substance: CELECOXIB
     Indication: ADENOMATOUS POLYPOSIS COLI
     Dosage: UNK
     Route: 065
  11. NAPROXEN. [Suspect]
     Active Substance: NAPROXEN
     Dosage: UNK
     Route: 065
  12. PENICILLIN G [Suspect]
     Active Substance: PENICILLIN G
     Dosage: UNK
     Route: 065
  13. INSULIN [Concomitant]
     Active Substance: INSULIN NOS
     Dosage: UNK
     Route: 048
  14. GABAPENTIN. [Suspect]
     Active Substance: GABAPENTIN
     Dosage: UNK
     Route: 065
  15. GEMCITABINE [Concomitant]
     Active Substance: GEMCITABINE\GEMCITABINE HYDROCHLORIDE
     Dosage: UNK
  16. LANTUS [Concomitant]
     Active Substance: INSULIN GLARGINE
     Dosage: UNK
     Route: 058
  17. MORPHINE SULFATE. [Suspect]
     Active Substance: MORPHINE SULFATE
     Dosage: 25 MG, 1X/DAY
     Route: 065
  18. GATIFLOXACIN. [Suspect]
     Active Substance: GATIFLOXACIN
     Dosage: UNK
     Route: 065
  19. MELOXICAM. [Suspect]
     Active Substance: MELOXICAM
     Dosage: UNK
     Route: 065
  20. MOXIFLOXACIN. [Suspect]
     Active Substance: MOXIFLOXACIN
     Dosage: UNK
     Route: 065
  21. CODEINE [Suspect]
     Active Substance: CODEINE
     Dosage: UNK
     Route: 065
  22. METFORMIN [Suspect]
     Active Substance: METFORMIN HYDROCHLORIDE
     Indication: TYPE 2 DIABETES MELLITUS
     Dosage: UNK
     Route: 048
  23. GLICLAZIDE [Suspect]
     Active Substance: GLICLAZIDE
     Indication: TYPE 2 DIABETES MELLITUS
     Dosage: UNK
     Route: 065
  24. GLYBURIDE. [Suspect]
     Active Substance: GLYBURIDE
     Indication: TYPE 2 DIABETES MELLITUS
     Dosage: UNK
     Route: 065
  25. IRBESARTAN. [Concomitant]
     Active Substance: IRBESARTAN
     Dosage: UNK
  26. ALTACE [Suspect]
     Active Substance: RAMIPRIL
     Dosage: UNK
     Route: 048
  27. GLUMETZA [Suspect]
     Active Substance: METFORMIN HYDROCHLORIDE
     Dosage: UNK
     Route: 065
  28. PHENETICILLIN POTASSIUM [Suspect]
     Active Substance: PHENETHICILLIN POTASSIUM
     Dosage: UNK
     Route: 065
  29. VIOXX [Suspect]
     Active Substance: ROFECOXIB
     Dosage: UNK
     Route: 065
  30. ZANTAC [Suspect]
     Active Substance: RANITIDINE HYDROCHLORIDE
     Dosage: UNK
     Route: 065

REACTIONS (2)
  - Drug intolerance [Unknown]
  - Anaphylactic reaction [Unknown]
